FAERS Safety Report 7622780-4 (Version None)
Quarter: 2011Q3

REPORT INFORMATION
  Report Type: 
  Country: None (occurrence: None)
  Receive Date: 20110719
  Receipt Date: 20110719
  Transmission Date: 20111222
  Serious: Yes (Life-Threatening)
  Sender: FDA-Public Use
  Company Number: None

PATIENT
  Age: 63 Year
  Sex: Female
  Weight: 65.318 kg

DRUGS (1)
  1. CYMBALTA [Suspect]

REACTIONS (4)
  - DEPRESSION [None]
  - APATHY [None]
  - MOVEMENT DISORDER [None]
  - SUICIDAL IDEATION [None]
